FAERS Safety Report 7368960-7 (Version None)
Quarter: 2011Q1

REPORT INFORMATION
  Report Type: 
  Country: None (occurrence: None)
  Receive Date: 20110323
  Receipt Date: 20110302
  Transmission Date: 20110831
  Serious: No
  Sender: FDA-Public Use
  Company Number: US-B.I. PHARMACEUTICALS,INC./RIDGEFIELD-2011-BP-07251BP

PATIENT
  Age: 81 Year
  Sex: Male

DRUGS (8)
  1. AMBIEN [Concomitant]
  2. DILTIAZEM [Concomitant]
  3. METFORMIN [Concomitant]
  4. LEVOTHYROXINE [Concomitant]
  5. SIMVASTATIN [Concomitant]
  6. GABAPENTIN [Concomitant]
  7. FLOMAX [Concomitant]
  8. PRADAXA [Suspect]
     Dosage: 300 MG
     Route: 048
     Dates: start: 20110215

REACTIONS (3)
  - NAUSEA [None]
  - BLOOD GLUCOSE INCREASED [None]
  - DECREASED APPETITE [None]
